FAERS Safety Report 5617241-8 (Version None)
Quarter: 2008Q1

REPORT INFORMATION
  Report Type: 
  Country: None (occurrence: None)
  Receive Date: 20080206
  Receipt Date: 20080206
  Transmission Date: 20080703
  Serious: Yes (Hospitalization)
  Sender: FDA-Public Use
  Company Number: None

PATIENT
  Sex: Female
  Weight: 59 kg

DRUGS (1)
  1. CISPLATIN [Suspect]
     Dosage: 161 MG
     Dates: end: 20071226

REACTIONS (7)
  - ANAEMIA [None]
  - DEHYDRATION [None]
  - NAUSEA [None]
  - ORAL INTAKE REDUCED [None]
  - PYREXIA [None]
  - STOMATITIS [None]
  - VOMITING [None]
